FAERS Safety Report 7945247-2 (Version None)
Quarter: 2011Q4

REPORT INFORMATION
  Report Type: 
  Country: None (occurrence: None)
  Receive Date: 20111129
  Receipt Date: 20110815
  Transmission Date: 20120403
  Serious: No
  Sender: FDA-Public Use
  Company Number: US-GLAXOSMITHKLINE-A0941088A

PATIENT
  Age: 87 Year
  Sex: Female

DRUGS (3)
  1. MULTIPLE MEDICATIONS [Concomitant]
  2. SPIRIVA [Concomitant]
  3. FLOVENT [Suspect]
     Indication: CHRONIC OBSTRUCTIVE PULMONARY DISEASE
     Dosage: 3PUFF TWICE PER DAY
     Route: 055

REACTIONS (1)
  - DYSPHONIA [None]
